FAERS Safety Report 9839097 (Version 2)
Quarter: 2014Q1

REPORT INFORMATION
  Report Type: Report from Study
  Country: NL (occurrence: NL)
  Receive Date: 20140123
  Receipt Date: 20140227
  Transmission Date: 20141002
  Serious: Yes (Other)
  Sender: FDA-Public Use
  Company Number: PHHY2013NL155296

PATIENT
  Sex: Female

DRUGS (5)
  1. ZOMETA [Suspect]
     Indication: METASTASES TO BONE
     Dosage: 4 MG/100 ML, ONCE EVERY 6 WEEKS
     Route: 042
  2. ZOMETA [Suspect]
     Dosage: 4 MG/100 ML, ONCE EVERY 6 WEEKS
     Route: 042
     Dates: start: 20121212
  3. ZOMETA [Suspect]
     Dosage: 4 MG/100 ML, ONCE EVERY 6 WEEKS
     Route: 042
     Dates: start: 20131118
  4. ZOMETA [Suspect]
     Dosage: 4 MG/100 ML, ONCE EVERY 6 WEEKS
     Route: 042
     Dates: start: 20131223
  5. ZOMETA [Suspect]
     Dosage: 4 MG/100 ML, ONCE EVERY 6 WEEKS
     Route: 042

REACTIONS (3)
  - Liver disorder [Not Recovered/Not Resolved]
  - Hepatic lesion [Unknown]
  - Gallbladder disorder [Not Recovered/Not Resolved]
